FAERS Safety Report 10012237 (Version 2)
Quarter: 2014Q1

REPORT INFORMATION
  Report Type: Spontaneous
  Country: CA (occurrence: CA)
  Receive Date: 20140314
  Receipt Date: 20140314
  Transmission Date: 20141002
  Serious: Yes (Other)
  Sender: FDA-Public Use
  Company Number: 2014SP001353

PATIENT
  Age: 85 Year
  Sex: Female

DRUGS (4)
  1. METHOTREXATE [Suspect]
     Indication: PRODUCT USED FOR UNKNOWN INDICATION
  2. ENBREL [Suspect]
     Indication: RHEUMATOID ARTHRITIS
     Dates: start: 20081219, end: 2013
  3. ENBREL [Suspect]
     Indication: RHEUMATOID ARTHRITIS
  4. FOLINIC ACID [Concomitant]

REACTIONS (4)
  - Musculoskeletal disorder [Unknown]
  - Mouth ulceration [Unknown]
  - Procedural pain [Unknown]
  - Oral discomfort [Unknown]
